FAERS Safety Report 15664376 (Version 1)
Quarter: 2018Q4

REPORT INFORMATION
  Report Type: Spontaneous
  Country: CA (occurrence: CA)
  Receive Date: 20181128
  Receipt Date: 20181128
  Transmission Date: 20190205
  Serious: Yes (Life-Threatening, Other)
  Sender: FDA-Public Use
  Company Number: CA-VIIV HEALTHCARE LIMITED-CA2018GSK214944

PATIENT
  Age: 36 Year
  Sex: Male
  Weight: 78 kg

DRUGS (1)
  1. TRIUMEQ [Suspect]
     Active Substance: ABACAVIR SULFATE\DOLUTEGRAVIR SODIUM\LAMIVUDINE
     Indication: PRODUCT USED FOR UNKNOWN INDICATION
     Dosage: 1 DF, TABLET, 1D
     Route: 048

REACTIONS (8)
  - Abdominal discomfort [Unknown]
  - Olfactory nerve disorder [Unknown]
  - Depression [Unknown]
  - Insomnia [Unknown]
  - Mood altered [Unknown]
  - Suicidal ideation [Unknown]
  - Psychotic disorder [Unknown]
  - Sleep disorder [Unknown]
